FAERS Safety Report 8997471 (Version 1)
Quarter: 2013Q1

REPORT INFORMATION
  Report Type: Spontaneous
  Country: US (occurrence: US)
  Receive Date: 20130104
  Receipt Date: 20130104
  Transmission Date: 20140127
  Serious: Yes (Other)
  Sender: FDA-Public Use
  Company Number: CHPA2012US025902

PATIENT
  Age: 84 Year
  Sex: Female

DRUGS (3)
  1. EXCEDRIN EXTRA STRENGTH [Suspect]
     Indication: ARTHRITIS
     Dosage: 2 DF DAILY
     Route: 048
  2. CLINORIL [Concomitant]
     Route: 048
  3. TYLENOL [Concomitant]
     Route: 048

REACTIONS (3)
  - Osteoporosis [Not Recovered/Not Resolved]
  - Osteoarthritis [Not Recovered/Not Resolved]
  - Incorrect drug administration duration [Unknown]
